FAERS Safety Report 5848811-X (Version None)
Quarter: 2008Q3

REPORT INFORMATION
  Report Type: 
  Country: None (occurrence: None)
  Receive Date: 20080818
  Receipt Date: 20080812
  Transmission Date: 20090109
  Serious: Yes (Disabling)
  Sender: FDA-Public Use
  Company Number: PE-PFIZER INC-2008066315

PATIENT
  Age: 61 Year
  Sex: Female

DRUGS (2)
  1. XALATAN [Suspect]
     Indication: GLAUCOMA
     Dosage: TEXT:1 DROP IN EACH EYE
     Route: 047
  2. ARTIFICIAL TEARS [Suspect]
     Route: 047

REACTIONS (3)
  - EYE IRRITATION [None]
  - HEADACHE [None]
  - OCULAR HYPERAEMIA [None]
